FAERS Safety Report 23626928 (Version 1)
Quarter: 2024Q1

REPORT INFORMATION
  Report Type: Spontaneous
  Country: NL (occurrence: NL)
  Receive Date: 20240313
  Receipt Date: 20240313
  Transmission Date: 20240410
  Serious: Yes (Hospitalization)
  Sender: FDA-Public Use
  Company Number: NL-ROCHE-3516901

PATIENT
  Age: 55 Year
  Sex: Male

DRUGS (2)
  1. BEVACIZUMAB [Suspect]
     Active Substance: BEVACIZUMAB
     Indication: Colorectal cancer metastatic
     Dosage: MOST RECENT CYCLE
     Route: 065
     Dates: start: 20230606
  2. CAPECITABINE [Suspect]
     Active Substance: CAPECITABINE
     Indication: Colorectal cancer metastatic
     Dosage: MOST RECENT CYCLE
     Route: 048
     Dates: start: 20230606

REACTIONS (3)
  - Hepatic enzyme abnormal [Recovered/Resolved]
  - Abdominal pain upper [Recovered/Resolved]
  - Neoplasm progression [Recovered/Resolved]

NARRATIVE: CASE EVENT DATE: 20230703
